FAERS Safety Report 8941623 (Version 1)
Quarter: 2012Q4

REPORT INFORMATION
  Report Type: 
  Country: CO (occurrence: CO)
  Receive Date: 20121203
  Receipt Date: 20121203
  Transmission Date: 20130627
  Serious: Yes (Other)
  Sender: FDA-Public Use
  Company Number: CO-PFIZER INC-2012301580

PATIENT
  Age: 59 Year
  Sex: Female

DRUGS (2)
  1. ZOLOF [Suspect]
     Indication: DEPRESSION
     Dosage: 50 mg, 1x/day
     Route: 048
     Dates: start: 1994, end: 1994
  2. ZOLOF [Suspect]
     Indication: ANXIETY
     Dosage: 50 mg, 1x/day
     Route: 048
     Dates: start: 2011

REACTIONS (2)
  - Ligament rupture [Unknown]
  - Influenza [Not Recovered/Not Resolved]
